FAERS Safety Report 5074257-0 (Version None)
Quarter: 2006Q3

REPORT INFORMATION
  Report Type: 
  Country: None (occurrence: None)
  Receive Date: 20060803
  Receipt Date: 20060721
  Transmission Date: 20061208
  Serious: Yes (Hospitalization, Other)
  Sender: FDA-Public Use
  Company Number: 2006BH012249

PATIENT
  Age: 61 Year
  Sex: Male
  Weight: 67 kg

DRUGS (5)
  1. MORPHINE SULFATE [Suspect]
     Indication: POSTOPERATIVE ANALGESIA
     Dosage: SEE IMAGE
  2. FENTANYL [Concomitant]
  3. THIOPENTAL SODIUM [Concomitant]
  4. SUCCINYLCHOLINE [Concomitant]
  5. ISOFLURANE [Concomitant]

REACTIONS (6)
  - ACCIDENTAL OVERDOSE [None]
  - BLOOD GASES ABNORMAL [None]
  - PROCEDURAL COMPLICATION [None]
  - RESPIRATORY RATE DECREASED [None]
  - SOMNOLENCE [None]
  - URINARY RETENTION [None]
